FAERS Safety Report 4415892-X (Version None)
Quarter: 2004Q3

REPORT INFORMATION
  Report Type: 
  Country: None (occurrence: None)
  Receive Date: 20040805
  Receipt Date: 20040503
  Transmission Date: 20050211
  Serious: No
  Sender: FDA-Public Use
  Company Number: US-GLAXOSMITHKLINE-A0509252A

PATIENT
  Age: 60 Year
  Sex: Female

DRUGS (4)
  1. AVANDAMET [Suspect]
     Dosage: 1TAB PER DAY
     Route: 048
     Dates: start: 20040502, end: 20040503
  2. ASPIRIN [Concomitant]
  3. METOPROLOL [Concomitant]
  4. NEURONTIN [Concomitant]

REACTIONS (3)
  - BACK PAIN [None]
  - DIARRHOEA [None]
  - FATIGUE [None]
